FAERS Safety Report 5696087-9 (Version None)
Quarter: 2008Q2

REPORT INFORMATION
  Report Type: 
  Country: None (occurrence: None)
  Receive Date: 20080407
  Receipt Date: 20080402
  Transmission Date: 20081010
  Serious: Yes (Life-Threatening, Hospitalization)
  Sender: FDA-Public Use
  Company Number: B0515100A

PATIENT
  Age: 30 Year
  Sex: Male

DRUGS (1)
  1. CLAMOXYL [Suspect]
     Indication: RHINITIS
     Dosage: 1G SINGLE DOSE
     Route: 048
     Dates: start: 20071231

REACTIONS (8)
  - ANAPHYLACTIC SHOCK [None]
  - BLOOD FIBRINOGEN DECREASED [None]
  - COAGULOPATHY [None]
  - CONVULSION [None]
  - DISSEMINATED INTRAVASCULAR COAGULATION [None]
  - INFECTION [None]
  - RASH [None]
  - THROMBOCYTOPENIA [None]
